FAERS Safety Report 4341054-0 (Version None)
Quarter: 2004Q2

REPORT INFORMATION
  Report Type: 
  Country: None (occurrence: None)
  Receive Date: 20040419
  Receipt Date: 20010905
  Transmission Date: 20050107
  Serious: Yes (Other)
  Sender: FDA-Public Use
  Company Number: US-MERCK-01090525

PATIENT
  Age: 76 Year
  Sex: Male

DRUGS (1)
  1. ZOCOR [Suspect]
     Indication: HYPERCHOLESTEROLAEMIA
     Route: 048
     Dates: start: 20010601, end: 20010601

REACTIONS (19)
  - ABASIA [None]
  - ARTHRALGIA [None]
  - ASTHENIA [None]
  - BALANCE DISORDER [None]
  - CEREBROVASCULAR DISORDER [None]
  - COORDINATION ABNORMAL [None]
  - DIARRHOEA [None]
  - HEADACHE [None]
  - INTERVERTEBRAL DISC DEGENERATION [None]
  - JOINT SWELLING [None]
  - LACUNAR INFARCTION [None]
  - LOCALISED OSTEOARTHRITIS [None]
  - MUSCLE DISORDER [None]
  - MUSCLE SPASMS [None]
  - MUSCULOSKELETAL STIFFNESS [None]
  - NECK PAIN [None]
  - PARAESTHESIA [None]
  - SPINAL COLUMN STENOSIS [None]
  - SPINAL CORD DISORDER [None]
